FAERS Safety Report 4480369-2 (Version None)
Quarter: 2004Q4

REPORT INFORMATION
  Report Type: 
  Country: None (occurrence: None)
  Receive Date: 20041018
  Receipt Date: 20020214
  Transmission Date: 20050328
  Serious: Yes (Hospitalization)
  Sender: FDA-Public Use
  Company Number: 530#5#2002-00004

PATIENT
  Age: 77 Year
  Sex: Male

DRUGS (17)
  1. ALPROSTADIL (PAOD) (DOSE UNKNOEN), UNKNOEN (BLINDED DRUG) (ALPROSTADIL [Suspect]
     Indication: INTERMITTENT CLAUDICATION
     Dosage: 1.5 TIMES 60 UG PER WEEK INTRAVENOUS DRIP
     Route: 041
     Dates: start: 20010514, end: 20010709
  2. ALPROSTADIL (PAOD) (DOSE UNKNOEN), UNKNOEN (BLINDED DRUG) (ALPROSTADIL [Suspect]
     Indication: PERIPHERAL VASCULAR DISORDER
     Dosage: 1.5 TIMES 60 UG PER WEEK INTRAVENOUS DRIP
     Route: 041
     Dates: start: 20010514, end: 20010709
  3. ALTERNATIVE DRUG (DOSE UNKNOWN), UNKNOWN (BLINDED DRUG) (ALTERNATIVE D [Suspect]
     Dosage: 2 X 600 MG PER DAY ; ORAL; SEE IMAGE
     Route: 048
     Dates: start: 20010514, end: 20010514
  4. ALTERNATIVE DRUG (DOSE UNKNOWN), UNKNOWN (BLINDED DRUG) (ALTERNATIVE D [Suspect]
     Dosage: 2 X 600 MG PER DAY ; ORAL; SEE IMAGE
     Route: 048
     Dates: start: 20010515, end: 20010709
  5. MOLSIDOMINE (MOLSIDOMINE) [Concomitant]
  6. FELODIPINE [Concomitant]
  7. ACETYLSALICYLIC ACID TABLETS (ACETYLSALICYLIC ACID) [Concomitant]
  8. (CAPTOPRIL 25 MG AND HYDROCHLOROTHIAZIDE 25) (CAPTOPRIL, HYDROCHLOROTH [Concomitant]
  9. MOXONIDINE 0.3 MG, COATED TABLETS (MOXINIDINE) [Concomitant]
  10. SIMVASTATIN [Concomitant]
  11. BORNAPRINE (BORNAPRINE) [Concomitant]
  12. LEVODOPA /BENSERAZIDE (BENSERAZIDE HYDROCHLORIDE, LEVODOPA) [Concomitant]
  13. ALLOPURINOL TABLETS (ALLOPURINOL) [Concomitant]
  14. HYDROCHLOROTHIAZIDE TABLETS (HYDROCHLOROTHIAZIDE) [Concomitant]
  15. BISOPROLOL TABLETS (BISOPROLOL) [Concomitant]
  16. FOSINOPRIL SODIUM [Concomitant]
  17. PRAVASTATIN [Concomitant]

REACTIONS (17)
  - ABDOMINAL PAIN UPPER [None]
  - AKINESIA [None]
  - ANGINA PECTORIS [None]
  - ASTHENIA [None]
  - ATRIAL FIBRILLATION [None]
  - CORONARY ARTERY ATHEROSCLEROSIS [None]
  - CORONARY ARTERY STENOSIS [None]
  - DISORIENTATION [None]
  - HAEMATEMESIS [None]
  - HAEMOGLOBIN DECREASED [None]
  - HYPERTENSIVE HEART DISEASE [None]
  - HYPOKINESIA [None]
  - MYOPATHY [None]
  - PNEUMONIA [None]
  - POST PROCEDURAL COMPLICATION [None]
  - PSYCHOMOTOR RETARDATION [None]
  - VENTRICULAR HYPERTROPHY [None]
